FAERS Safety Report 5720467-6 (Version None)
Quarter: 2008Q2

REPORT INFORMATION
  Report Type: 
  Country: None (occurrence: None)
  Receive Date: 20080428
  Receipt Date: 20080417
  Transmission Date: 20081010
  Serious: Yes (Hospitalization)
  Sender: FDA-Public Use
  Company Number: FR-PFIZER INC-2008034590

PATIENT
  Sex: Female

DRUGS (11)
  1. ALDACTONE [Suspect]
     Indication: HYPERTENSION
     Route: 048
  2. DIFFU K [Interacting]
     Indication: HYPOKALAEMIA
     Dosage: TEXT:3 DOSE FORM-FREQ:EVERY DAY
     Route: 048
  3. FUROSEMIDE [Interacting]
     Indication: HYPERTENSION
     Route: 048
  4. PERINDOPRIL ERBUMINE [Interacting]
     Indication: CARDIAC FAILURE
     Route: 048
     Dates: start: 20071121, end: 20071126
  5. LEVOTHYROXINE SODIUM [Concomitant]
  6. ATHYMIL [Concomitant]
  7. TARDYFERON [Concomitant]
  8. ENDOTELON [Concomitant]
  9. TIAPRIDAL [Concomitant]
     Indication: PSYCHOTIC DISORDER
     Route: 048
     Dates: start: 20071115, end: 20071128
  10. PREVISCAN [Concomitant]
     Indication: ATRIAL FIBRILLATION
     Route: 048
  11. PANTOPRAZOLE SODIUM [Concomitant]
     Indication: OESOPHAGEAL ULCER
     Route: 048

REACTIONS (4)
  - DRUG INTERACTION [None]
  - MICROCYTIC ANAEMIA [None]
  - RENAL FAILURE [None]
  - URINARY TRACT INFECTION [None]
